FAERS Safety Report 19025603 (Version 1)
Quarter: 2021Q1

REPORT INFORMATION
  Report Type: Spontaneous
  Country: US (occurrence: US)
  Receive Date: 20210318
  Receipt Date: 20210318
  Transmission Date: 20210420
  Serious: No
  Sender: FDA-Public Use
  Company Number: US-GLAXOSMITHKLINE-US2021AMR061901

PATIENT
  Sex: Female

DRUGS (2)
  1. BUPROPION HYDROCHLORIDE XL [Suspect]
     Active Substance: BUPROPION HYDROCHLORIDE
     Indication: DEPRESSION
     Dosage: 150 MG, QD
     Dates: start: 2021, end: 2021
  2. WELLBUTRIN XL [Suspect]
     Active Substance: BUPROPION HYDROCHLORIDE
     Indication: DEPRESSION
     Dosage: 150 MG, QD
     Dates: start: 2021

REACTIONS (9)
  - Crying [Recovering/Resolving]
  - Therapy cessation [Unknown]
  - Product quality issue [Unknown]
  - Disturbance in attention [Not Recovered/Not Resolved]
  - Depression [Unknown]
  - Insurance issue [Unknown]
  - Feeling abnormal [Unknown]
  - Drug ineffective [Unknown]
  - Disease recurrence [Unknown]

NARRATIVE: CASE EVENT DATE: 2021
